FAERS Safety Report 9225521 (Version 1)
Quarter: 2013Q2

REPORT INFORMATION
  Report Type: Spontaneous
  Country: US (occurrence: None)
  Receive Date: 20130410
  Receipt Date: 20130410
  Transmission Date: 20140414
  Serious: No
  Sender: FDA-Public Use
  Company Number: None

PATIENT
  Age: 69 Year
  Sex: Female

DRUGS (1)
  1. TASIGNA [Suspect]
     Indication: NEOPLASM MALIGNANT
     Dosage: 150 MG 2 BID PO
     Route: 048
     Dates: start: 20130312, end: 20130409

REACTIONS (4)
  - Cough [None]
  - Rash [None]
  - Gastrooesophageal reflux disease [None]
  - Fatigue [None]
